FAERS Safety Report 8818497 (Version 1)
Quarter: 2012Q4

REPORT INFORMATION
  Report Type: 
  Country: US (occurrence: US)
  Receive Date: 20121001
  Receipt Date: 20121001
  Transmission Date: 20130627
  Serious: Yes (Hospitalization)
  Sender: FDA-Public Use
  Company Number: US-ROCHE-1137934

PATIENT
  Age: 64 Year
  Sex: Female

DRUGS (1)
  1. NAPROXEN [Suspect]
     Indication: ARTHRALGIA

REACTIONS (3)
  - Tubulointerstitial nephritis [Recovered/Resolved]
  - Renal failure acute [Recovered/Resolved]
  - Glycosuria [Recovered/Resolved]
